FAERS Safety Report 6278950-3 (Version None)
Quarter: 2009Q3

REPORT INFORMATION
  Report Type: 
  Country: None (occurrence: None)
  Receive Date: 20090723
  Receipt Date: 20090717
  Transmission Date: 20100115
  Serious: Yes (Other)
  Sender: FDA-Public Use
  Company Number: US-ELI_LILLY_AND_COMPANY-US200907004381

PATIENT
  Sex: Male

DRUGS (3)
  1. HUMALOG [Suspect]
     Dosage: UNK, AS NEEDED
  2. LANTUS [Concomitant]
     Indication: DIABETES MELLITUS
     Dosage: 38 U, EACH MORNING
     Dates: end: 20090601
  3. LANTUS [Concomitant]
     Dosage: 8 U, EACH EVENING
     Route: 058
     Dates: start: 19890101, end: 20090601

REACTIONS (1)
  - HEPATIC NEOPLASM MALIGNANT [None]
